FAERS Safety Report 4371687-7 (Version None)
Quarter: 2004Q2

REPORT INFORMATION
  Report Type: 
  Country: None (occurrence: None)
  Receive Date: 20040602
  Receipt Date: 20040519
  Transmission Date: 20050107
  Serious: Yes (Hospitalization)
  Sender: FDA-Public Use
  Company Number: DE-JNJFOC-20040504278

PATIENT
  Age: 72 Year
  Sex: Female
  Weight: 58 kg

DRUGS (6)
  1. REMICADE [Suspect]
     Indication: POLYARTHRITIS
     Dosage: 200 MG, 1 IN 6 WEEK, INTRAVENOUS
     Route: 042
     Dates: start: 20020501, end: 20031217
  2. MARACUMAR (PHENPROUCOUMON) [Suspect]
  3. METHOTREXATE [Suspect]
     Indication: POLYARTHRITIS
     Dosage: 15 MG, 1 IN 1 WEEK, INTRAVENOUS
     Route: 042
     Dates: start: 19980101, end: 20040101
  4. METYJOVED (ALL OTHER THERAPEUTIC PRODUCTS) [Concomitant]
  5. ALENDRONAT (ALENDRONATE SODIUM) [Concomitant]
  6. ROFECOXIB [Concomitant]

REACTIONS (6)
  - ASPARTATE AMINOTRANSFERASE INCREASED [None]
  - BLOOD UREA DECREASED [None]
  - DIVERTICULUM INTESTINAL HAEMORRHAGIC [None]
  - DRUG INTERACTION [None]
  - PNEUMONIA [None]
  - TUBERCULOSIS [None]
